FAERS Safety Report 9487564 (Version 2)
Quarter: 2013Q3

REPORT INFORMATION
  Report Type: Spontaneous
  Country: US (occurrence: US)
  Receive Date: 20130725
  Receipt Date: 20130725
  Transmission Date: 20140515
  Serious: Yes (Hospitalization)
  Sender: FDA-Public Use
  Company Number: US-GLAXOSMITHKLINE-A0815206A

PATIENT
  Age: 68 Year
  Sex: Female
  Weight: 127.3 kg

DRUGS (8)
  1. AVANDIA [Suspect]
     Indication: DIABETES MELLITUS
     Route: 048
     Dates: start: 200105, end: 20070523
  2. LIPITOR [Concomitant]
  3. ATENOLOL [Concomitant]
  4. SYNTHROID [Concomitant]
  5. COZAAR [Concomitant]
  6. RISPERDAL [Concomitant]
  7. FLONASE [Concomitant]
  8. GLUCOTROL [Concomitant]

REACTIONS (1)
  - Cardiac failure congestive [Recovered/Resolved]
